FAERS Safety Report 5306785-4 (Version None)
Quarter: 2007Q2

REPORT INFORMATION
  Report Type: 
  Country: None (occurrence: None)
  Receive Date: 20070423
  Receipt Date: 20070423
  Transmission Date: 20071010
  Serious: Yes (Hospitalization)
  Sender: FDA-Public Use
  Company Number: None

PATIENT
  Age: 92 Year
  Sex: Male
  Weight: 72.1219 kg

DRUGS (10)
  1. CITALOPRAM HYDROBROMIDE [Suspect]
     Indication: DEPRESSION
     Dosage: 40 MG DAILY PO
     Route: 048
     Dates: start: 20070316, end: 20070407
  2. ACETAMINOPHEN [Concomitant]
  3. GLANTAMINE [Concomitant]
  4. MEMANTINE HCL [Concomitant]
  5. NIFEDIPINE [Concomitant]
  6. SIMVASTATIN [Concomitant]
  7. SOTALOL HYDROCHLORIDE [Concomitant]
  8. WARFARIN SODIUM [Concomitant]
  9. TERAZOSIN HCL [Concomitant]
  10. LORAZEPAM [Concomitant]

REACTIONS (3)
  - ANXIETY [None]
  - HALLUCINATION, VISUAL [None]
  - MENTAL STATUS CHANGES [None]
